FAERS Safety Report 12466326 (Version 1)
Quarter: 2016Q2

REPORT INFORMATION
  Report Type: Spontaneous
  Country: FR (occurrence: FR)
  Receive Date: 20160615
  Receipt Date: 20160615
  Transmission Date: 20160815
  Serious: Yes (Other)
  Sender: FDA-Public Use
  Company Number: FR-BEH-2016070151

PATIENT
  Age: 74 Year
  Sex: Male

DRUGS (6)
  1. PRIVIGEN [Suspect]
     Active Substance: HUMAN IMMUNOGLOBULIN G
     Dosage: UNK
     Route: 042
  2. PRIVIGEN [Suspect]
     Active Substance: HUMAN IMMUNOGLOBULIN G
     Dosage: UNK
     Route: 042
  3. ALLOPURINOL. [Concomitant]
     Active Substance: ALLOPURINOL
     Route: 065
  4. PRIVIGEN [Suspect]
     Active Substance: HUMAN IMMUNOGLOBULIN G
     Indication: POLYNEUROPATHY
     Dosage: 160 G, UNK
     Route: 042
     Dates: start: 20160304, end: 20160308
  5. EZETROL [Concomitant]
     Active Substance: EZETIMIBE
     Route: 065
  6. TENORETIC [Concomitant]
     Active Substance: ATENOLOL\CHLORTHALIDONE
     Route: 065

REACTIONS (4)
  - Eczema [Not Recovered/Not Resolved]
  - Rash maculo-papular [Not Recovered/Not Resolved]
  - Pruritus [Not Recovered/Not Resolved]
  - Parapsoriasis [Not Recovered/Not Resolved]

NARRATIVE: CASE EVENT DATE: 20160322
